FAERS Safety Report 20027737 (Version 1)
Quarter: 2021Q4

REPORT INFORMATION
  Report Type: Report from Study
  Country: US (occurrence: US)
  Receive Date: 20211103
  Receipt Date: 20211103
  Transmission Date: 20220303
  Serious: Yes (Other)
  Sender: FDA-Public Use
  Company Number: US-Taiho Oncology Inc-EU-2021-03079

PATIENT
  Age: 81 Year
  Sex: Male
  Weight: 68.100 kg

DRUGS (29)
  1. LONSURF [Suspect]
     Active Substance: TIPIRACIL HYDROCHLORIDE\TRIFLURIDINE
     Indication: Colon cancer
     Dosage: CYCLE 1
     Dates: start: 20210817
  2. LONSURF [Suspect]
     Active Substance: TIPIRACIL HYDROCHLORIDE\TRIFLURIDINE
     Dosage: CURRENT CYCLE UNKNOWN.
     Route: 048
  3. LONSURF [Suspect]
     Active Substance: TIPIRACIL HYDROCHLORIDE\TRIFLURIDINE
     Dosage: DOSE, FREQUENCY AND CYCLE UNKNOWN
     Route: 048
     Dates: end: 20210915
  4. FENTANYL [Concomitant]
     Active Substance: FENTANYL
     Dosage: TRANSDERMAL PATCH 50 MCG/HR 50 MCG/HR PATCH 72 HOUR 1 PATCH TRANSDERMALLY EVERY 72 HOURS.
     Route: 062
  5. FENTANYL [Concomitant]
     Active Substance: FENTANYL
     Dosage: 25 MCG/HR 25 MCG/HR PATCH 72 HOUR 1 PATCH TRANSDERMALLY EVERY 72 HOURS.
     Route: 062
  6. STIVARGA [Concomitant]
     Active Substance: REGORAFENIB
     Dosage: TAKE WHOLE WITH A LOW-FAT BREAKFAST
     Route: 048
  7. GLIMEPIRIDE [Concomitant]
     Active Substance: GLIMEPIRIDE
     Route: 048
  8. LIDOCAINE\PRILOCAINE [Concomitant]
     Active Substance: LIDOCAINE\PRILOCAINE
     Dosage: STRENGTH : 2.5 %-2.5 %. 1 TOPICAL APPLICATION OVER PORT 1 HR PRIOR TO CHEMO
     Route: 061
  9. MAGNESIUM CITRATE [Concomitant]
     Active Substance: MAGNESIUM CITRATE
     Route: 048
  10. ACETAMINOPHEN\HYDROCODONE [Concomitant]
     Active Substance: ACETAMINOPHEN\HYDROCODONE
     Indication: Pain
     Dosage: 5-325 MG, 1 TABLET ORALLY EVERY 4 HOURS AS NEEDED
     Route: 048
  11. OLANZAPINE [Concomitant]
     Active Substance: OLANZAPINE
     Indication: Nausea
     Dosage: TAKE ONE TABLET DAILY AT BEDTIME FOR 4 NIGHTS STARTING DAY 1 OF EACH CHEMOTHERAPY CYCLE
     Route: 048
  12. ACETAMINOPHEN [Concomitant]
     Active Substance: ACETAMINOPHEN
     Dosage: AS DIRECTED
     Route: 048
  13. CALCIUM ASCORBATE [Concomitant]
     Active Substance: CALCIUM ASCORBATE
     Route: 048
  14. CHOLECALCIFEROL [Concomitant]
     Active Substance: CHOLECALCIFEROL
     Dosage: 10 MCG/5 ML (400 UNIT/5 ML) LIQUID 5 ML DALLY
     Route: 048
  15. ONDANSETRON [Concomitant]
     Active Substance: ONDANSETRON
     Indication: Nausea
     Route: 048
  16. XARELTO [Concomitant]
     Active Substance: RIVAROXABAN
     Dosage: AS DIRECTED
     Route: 048
  17. COENZYME Q10 [Concomitant]
     Active Substance: DIETARY SUPPLEMENT\UBIDECARENONE
     Route: 048
  18. COENZYME Q10 [Concomitant]
     Active Substance: DIETARY SUPPLEMENT\UBIDECARENONE
     Route: 048
  19. DOCONEXENT\ ICOSAPENT\ FISH OIL\ OMEGA-3 FATTY ACIDS [Concomitant]
     Active Substance: DOCONEXENT\ ICOSAPENT\ FISH OIL\ OMEGA-3 FATTY ACIDS
     Dosage: 500 MG (200MG-300MG)-1,000 MG 500-1,000 MG.
     Route: 048
  20. MEGESTROL [Concomitant]
     Active Substance: MEGESTROL
     Dosage: 400 MG/10 ML 400 MG/10 ML (10 ML) SUSPENSION 5 ML ORALLY EVERY DAY.
     Route: 048
  21. PROMETHAZINE [Concomitant]
     Active Substance: PROMETHAZINE HYDROCHLORIDE
     Route: 048
  22. ATORVASTATIN [Concomitant]
     Active Substance: ATORVASTATIN
     Route: 048
  23. DICLOFENAC SODIUM [Concomitant]
     Active Substance: DICLOFENAC SODIUM
     Dosage: TOP 2 APPLICATION
     Route: 048
  24. METHOCARBAMOL [Concomitant]
     Active Substance: METHOCARBAMOL
     Dosage: PRN
     Route: 048
  25. GABAPENTIN [Concomitant]
     Active Substance: GABAPENTIN
     Dosage: PRN
     Route: 048
  26. METFORMIN [Concomitant]
     Active Substance: METFORMIN HYDROCHLORIDE
     Route: 048
  27. PROCHLORPERAZINE [Concomitant]
     Active Substance: PROCHLORPERAZINE
     Indication: Nausea
     Route: 048
  28. TAMSULOSIN [Concomitant]
     Active Substance: TAMSULOSIN
     Dosage: AS DIRECTED
     Route: 048
  29. VITAMIN B COMPLEX [Concomitant]
     Active Substance: CYANOCOBALAMIN\DEXPANTHENOL\NIACINAMIDE\PYRIDOXINE HYDROCHLORIDE\RIBOFLAVIN 5^-PHOSPHATE SODIUM\THIA
     Dosage: 1 TABLET DAILY
     Route: 048

REACTIONS (8)
  - Disease progression [Unknown]
  - Pulmonary embolism [Unknown]
  - Diabetes mellitus inadequate control [Unknown]
  - Leukopenia [Unknown]
  - Ageusia [Unknown]
  - Decreased appetite [Unknown]
  - Abdominal pain [Unknown]
  - Diarrhoea [Unknown]
